FAERS Safety Report 5221960-5 (Version None)
Quarter: 2007Q1

REPORT INFORMATION
  Report Type: 
  Country: None (occurrence: None)
  Receive Date: 20070129
  Receipt Date: 20060209
  Transmission Date: 20070707
  Serious: No
  Sender: FDA-Public Use
  Company Number: US-GLAXOSMITHKLINE-A0593512A

PATIENT
  Age: 63 Year
  Sex: Male

DRUGS (1)
  1. WELLBUTRIN [Suspect]

REACTIONS (2)
  - EMOTIONAL DISORDER [None]
  - TEARFULNESS [None]
